FAERS Safety Report 10747787 (Version 2)
Quarter: 2015Q2

REPORT INFORMATION
  Report Type: Spontaneous
  Country: US (occurrence: US)
  Receive Date: 20150129
  Receipt Date: 20150617
  Transmission Date: 20150821
  Serious: Yes (Hospitalization)
  Sender: FDA-Public Use
  Company Number: US-BAYER-2015-011560

PATIENT
  Age: 28 Year
  Sex: Female
  Weight: 81.18 kg

DRUGS (2)
  1. MIRENA [Suspect]
     Active Substance: LEVONORGESTREL
     Indication: CONTRACEPTION
     Dosage: 20 MCG/24HR, CONT
     Route: 015
     Dates: start: 20111221, end: 20131227
  2. MIRENA [Suspect]
     Active Substance: LEVONORGESTREL
     Indication: CONTRACEPTION
     Dosage: 20 MCG/24HR, CONT
     Route: 015
     Dates: start: 200608, end: 201008

REACTIONS (15)
  - Anxiety [None]
  - Pregnancy with contraceptive device [None]
  - Abdominal pain [None]
  - Vomiting [None]
  - Scar [None]
  - Drug ineffective [None]
  - Colon injury [None]
  - Depression [None]
  - Complication of pregnancy [None]
  - Injury [None]
  - Pain [None]
  - Influenza like illness [None]
  - Uterine perforation [None]
  - Emotional distress [None]
  - Device issue [None]

NARRATIVE: CASE EVENT DATE: 201301
